FAERS Safety Report 4422650-9 (Version None)
Quarter: 2004Q3

REPORT INFORMATION
  Report Type: 
  Country: None (occurrence: None)
  Receive Date: 20040713
  Receipt Date: 20030821
  Transmission Date: 20050211
  Serious: No
  Sender: FDA-Public Use
  Company Number: PHEH2003US05807

PATIENT
  Age: 62 Year
  Sex: Female

DRUGS (5)
  1. ELIDEL [Suspect]
     Indication: ECZEMA
     Dosage: 1 APPLICATION/BID, TOPICAL
     Route: 061
     Dates: start: 20030702, end: 20030708
  2. CLEOCIN [Suspect]
     Dates: start: 20030702, end: 20030707
  3. CALAN [Concomitant]
  4. PREMARIN [Concomitant]
  5. LEXAPRO [Concomitant]

REACTIONS (1)
  - BREAST PAIN [None]
